FAERS Safety Report 8424149-1 (Version None)
Quarter: 2012Q2

REPORT INFORMATION
  Report Type: 
  Country: None (occurrence: None)
  Receive Date: 20120608
  Receipt Date: 20120319
  Transmission Date: 20120825
  Serious: No
  Sender: FDA-Public Use
  Company Number: US-ASTRAZENECA-2012SE19038

PATIENT
  Age: 77 Year
  Sex: Male

DRUGS (2)
  1. PULMICORT [Suspect]
     Dosage: GENERIC
     Route: 055
  2. PULMICORT [Suspect]
     Route: 055

REACTIONS (3)
  - BREATH SOUNDS ABNORMAL [None]
  - DRUG INEFFECTIVE [None]
  - DYSPNOEA [None]
